FAERS Safety Report 5242166-X (Version None)
Quarter: 2007Q1

REPORT INFORMATION
  Report Type: 
  Country: None (occurrence: None)
  Receive Date: 20070213
  Receipt Date: 20070130
  Transmission Date: 20070707
  Serious: Yes (Hospitalization)
  Sender: FDA-Public Use
  Company Number: 2007JP000270

PATIENT
  Age: 79 Year
  Sex: Male
  Weight: 51.6 kg

DRUGS (13)
  1. PROGRAF [Suspect]
     Indication: RHEUMATOID ARTHRITIS
     Dosage: SEE IMAGE
     Route: 048
     Dates: start: 20060829, end: 20061212
  2. PROGRAF [Suspect]
     Indication: RHEUMATOID ARTHRITIS
     Dosage: SEE IMAGE
     Route: 048
     Dates: start: 20061213, end: 20061227
  3. PREDONINE (PREDNISOLONE) TABLET, 5MG [Suspect]
     Indication: RHEUMATOID ARTHRITIS
     Dosage: SEE IMAGE
     Route: 048
     Dates: end: 20061212
  4. PREDONINE (PREDNISOLONE) TABLET, 5MG [Suspect]
     Indication: RHEUMATOID ARTHRITIS
     Dosage: SEE IMAGE
     Route: 048
     Dates: start: 20061213
  5. ANPLAG (SARPOGRELATE HYDROCHLORIDE) TABLET [Concomitant]
  6. METHYCOBAL (MECOBALAMIN) TABLET [Concomitant]
  7. MUCOSTA (REBAMIPIDE) TABLET [Concomitant]
  8. ALFAROL (ALFACALCIDOL) CAPSULE [Concomitant]
  9. CALCIUM LACTATE (CALCIUM LACTATE) PER ORAL NOS [Concomitant]
  10. DIDRONEL [Concomitant]
  11. KEFRAL (CEFACLOR) TABLET [Concomitant]
  12. CEFAMEZIN (CEFAZOLIN) INJECTION [Concomitant]
  13. ELCITONIN (ELCATONIN) INJECTION [Concomitant]

REACTIONS (6)
  - HYPERTENSION [None]
  - INTERSTITIAL LUNG DISEASE [None]
  - PNEUMOCONIOSIS [None]
  - PULMONARY TUBERCULOSIS [None]
  - RENAL IMPAIRMENT [None]
  - RHEUMATOID ARTHRITIS [None]
